FAERS Safety Report 24745599 (Version 4)
Quarter: 2025Q3

REPORT INFORMATION
  Report Type: Spontaneous
  Country: US (occurrence: US)
  Receive Date: 20241218
  Receipt Date: 20250709
  Transmission Date: 20251021
  Serious: No
  Sender: SANOFI AVENTIS
  Company Number: US-SA-2024SA371188

PATIENT
  Age: 61 Year
  Sex: Female
  Weight: 63.64 kg

DRUGS (1)
  1. KEVZARA [Suspect]
     Active Substance: SARILUMAB
     Indication: Rheumatoid arthritis
     Dosage: 200 MG, QOW
     Route: 058
     Dates: start: 20240905

REACTIONS (10)
  - Injection site rash [Recovered/Resolved]
  - Injection site warmth [Recovered/Resolved]
  - Injection site swelling [Recovered/Resolved]
  - Joint swelling [Unknown]
  - Condition aggravated [Unknown]
  - Flushing [Unknown]
  - Pruritus [Unknown]
  - Injection site erythema [Recovered/Resolved]
  - Arthralgia [Unknown]
  - Drug ineffective [Unknown]

NARRATIVE: CASE EVENT DATE: 20240101
